FAERS Safety Report 5805782-X (Version None)
Quarter: 2008Q3

REPORT INFORMATION
  Report Type: 
  Country: None (occurrence: None)
  Receive Date: 20080710
  Receipt Date: 20080701
  Transmission Date: 20090109
  Serious: Yes (Other)
  Sender: FDA-Public Use
  Company Number: GB-TEVA-173781ISR

PATIENT
  Age: 60 Year
  Sex: Female

DRUGS (5)
  1. BACLOFEN [Suspect]
     Indication: TRIGEMINAL NEURALGIA
     Dates: start: 20080331, end: 20080418
  2. BACLOFEN [Suspect]
  3. BACLOFEN [Suspect]
  4. CARBAMAZEPINE [Suspect]
  5. DIAZEPAM [Suspect]

REACTIONS (9)
  - CHROMATURIA [None]
  - DRUG INTERACTION [None]
  - DYSGEUSIA [None]
  - FATIGUE [None]
  - MALAISE [None]
  - MYALGIA [None]
  - PAIN [None]
  - TREMOR [None]
  - WEIGHT DECREASED [None]
